FAERS Safety Report 13307010 (Version 2)
Quarter: 2017Q1

REPORT INFORMATION
  Report Type: Spontaneous
  Country: UA (occurrence: UA)
  Receive Date: 20170308
  Receipt Date: 20170322
  Transmission Date: 20170428
  Serious: Yes (Other)
  Sender: FDA-Public Use
  Company Number: UA-ASTRAZENECA-2017SE22955

PATIENT
  Age: 23719 Day
  Sex: Female
  Weight: 96 kg

DRUGS (6)
  1. BRILINTA [Suspect]
     Active Substance: TICAGRELOR
     Indication: ACUTE CORONARY SYNDROME
     Route: 048
     Dates: start: 20170224, end: 20170227
  2. RAMIPRIL. [Concomitant]
     Active Substance: RAMIPRIL
  3. ENOXAPARIN [Concomitant]
     Active Substance: ENOXAPARIN
  4. BRILINTA [Suspect]
     Active Substance: TICAGRELOR
     Indication: ACUTE MYOCARDIAL INFARCTION
     Route: 048
     Dates: start: 20170224, end: 20170227
  5. ASPIRIN. [Concomitant]
     Active Substance: ASPIRIN
  6. CEFTRIAXON [Concomitant]
     Active Substance: CEFTRIAXONE

REACTIONS (3)
  - Type IV hypersensitivity reaction [Recovered/Resolved]
  - Rash [Recovered/Resolved]
  - Pruritus [Recovered/Resolved]

NARRATIVE: CASE EVENT DATE: 20170226
